FAERS Safety Report 15794732 (Version 1)
Quarter: 2019Q1

REPORT INFORMATION
  Report Type: Spontaneous
  Country: DK (occurrence: DK)
  Receive Date: 20190107
  Receipt Date: 20190107
  Transmission Date: 20190417
  Serious: Yes (Death, Hospitalization)
  Sender: FDA-Public Use
  Company Number: DK-B.I. PHARMACEUTICALS,INC./RIDGEFIELD-2019-12-000003

PATIENT
  Age: 75 Year
  Sex: Female

DRUGS (2)
  1. ALLOPURINOL. [Concomitant]
     Active Substance: ALLOPURINOL
     Indication: GOUT
     Dosage: STYRKE: 300 MG.
     Route: 048
     Dates: start: 20151102
  2. PRADAXA [Suspect]
     Active Substance: DABIGATRAN ETEXILATE MESYLATE
     Indication: ATRIAL FIBRILLATION
     Dosage: STYRKE: 150 MG.
     Route: 048
     Dates: start: 20120118, end: 20181122

REACTIONS (4)
  - Cerebral haemorrhage [Fatal]
  - Brain death [Fatal]
  - Brain midline shift [Fatal]
  - Brain herniation [Fatal]

NARRATIVE: CASE EVENT DATE: 20181122
